FAERS Safety Report 5339536-8 (Version None)
Quarter: 2007Q2

REPORT INFORMATION
  Report Type: 
  Country: None (occurrence: None)
  Receive Date: 20070404
  Receipt Date: 20061026
  Transmission Date: 20071010
  Serious: Yes (Other)
  Sender: FDA-Public Use
  Company Number: US200610004678

PATIENT
  Age: 79 Year
  Sex: Male

DRUGS (1)
  1. ALIMTA [Suspect]
     Dosage: INTRAVENOUS
     Route: 042
     Dates: start: 20060425, end: 20060817

REACTIONS (1)
  - ANAEMIA MACROCYTIC [None]
